FAERS Safety Report 16394407 (Version 1)
Quarter: 2019Q2

REPORT INFORMATION
  Report Type: Spontaneous
  Country: US (occurrence: US)
  Receive Date: 20190430
  Receipt Date: 20190430
  Transmission Date: 20190711
  Serious: Yes (Hospitalization)
  Sender: FDA-Public Use
  Company Number: None

PATIENT
  Age: 14 Year
  Sex: Male

DRUGS (4)
  1. PULMAZYME [Concomitant]
  2. NORDITROPIN [Suspect]
     Active Substance: SOMATROPIN
     Indication: HYPOPITUITARISM
     Dosage: ?          OTHER FREQUENCY:6 TIMES  A WEEK;?
     Route: 058
     Dates: start: 20190221
  3. BUDESONIDE. [Concomitant]
     Active Substance: BUDESONIDE
  4. HUMATROPE [Concomitant]
     Active Substance: SOMATROPIN

REACTIONS (1)
  - Cystic fibrosis [None]

NARRATIVE: CASE EVENT DATE: 2019
